FAERS Safety Report 11045694 (Version 12)
Quarter: 2019Q2

REPORT INFORMATION
  Report Type: Report from Study
  Country: CA (occurrence: CA)
  Receive Date: 20150417
  Receipt Date: 20190419
  Transmission Date: 20190711
  Serious: Yes (Other)
  Sender: FDA-Public Use
  Company Number: PHHY2014CA025066

PATIENT
  Age: 61 Year
  Sex: Female

DRUGS (1)
  1. SANDOSTATIN LAR DEPOT [Suspect]
     Active Substance: OCTREOTIDE ACETATE
     Indication: NEUROENDOCRINE TUMOUR
     Dosage: 30 MG, QMO (ONCE A MONTH)
     Route: 030
     Dates: start: 20140106

REACTIONS (30)
  - Heart rate decreased [Unknown]
  - Muscle spasms [Recovered/Resolved]
  - Mood swings [Unknown]
  - Anal incontinence [Unknown]
  - Nausea [Unknown]
  - Depressed mood [Unknown]
  - Hepatic lesion [Unknown]
  - Injection site haemorrhage [Recovered/Resolved]
  - Blood glucose decreased [Unknown]
  - Insomnia [Unknown]
  - Tearfulness [Unknown]
  - Malaise [Unknown]
  - Nausea [Recovered/Resolved]
  - Abdominal distension [Unknown]
  - Abdominal pain upper [Unknown]
  - Crying [Unknown]
  - Circadian rhythm sleep disorder [Unknown]
  - Injection site mass [Unknown]
  - Fatigue [Unknown]
  - Vomiting [Recovered/Resolved]
  - Abdominal pain [Unknown]
  - Injection site pain [Recovered/Resolved]
  - Vomiting [Unknown]
  - Diarrhoea [Unknown]
  - Helicobacter infection [Unknown]
  - Blood pressure increased [Unknown]
  - Chest pain [Recovering/Resolving]
  - Emotional disorder [Unknown]
  - Abdominal discomfort [Recovering/Resolving]
  - Dyspepsia [Unknown]

NARRATIVE: CASE EVENT DATE: 2014
